FAERS Safety Report 7004157-8 (Version None)
Quarter: 2010Q3

REPORT INFORMATION
  Report Type: 
  Country: None (occurrence: None)
  Receive Date: 20100920
  Receipt Date: 20100212
  Transmission Date: 20110219
  Serious: No
  Sender: FDA-Public Use
  Company Number: US-WYE-H13638610

PATIENT
  Sex: Female

DRUGS (1)
  1. PRISTIQ [Suspect]
     Indication: DEPRESSION
     Route: 048
     Dates: start: 20100127

REACTIONS (3)
  - EYE PAIN [None]
  - HEADACHE [None]
  - OCULAR HYPERAEMIA [None]
